FAERS Safety Report 8688762 (Version 3)
Quarter: 2012Q4

REPORT INFORMATION
  Report Type: 
  Country: CA (occurrence: US)
  Receive Date: 20120727
  Receipt Date: 20121105
  Transmission Date: 20130627
  Serious: Yes (Hospitalization, Other)
  Sender: FDA-Public Use
  Company Number: US-009507513-1207USA005890

PATIENT

DRUGS (13)
  1. FOSAMAX [Suspect]
     Indication: OSTEOPENIA
     Dosage: 70 mg, UNK
     Route: 048
     Dates: start: 20030211, end: 20070501
  2. FOSAMAX [Suspect]
     Indication: OSTEOPOROSIS
  3. FOSAMAX [Suspect]
     Indication: OSTEOPENIA
     Dosage: 70 mg, UNK
     Route: 048
     Dates: start: 20090609, end: 20100713
  4. FOSAMAX [Suspect]
     Indication: OSTEOPOROSIS
  5. ALENDRONATE SODIUM [Suspect]
     Dosage: 70 mg, UNK
     Route: 048
  6. BONIVA [Suspect]
     Indication: OSTEOPENIA
     Dosage: 150 mg, UNK
     Route: 048
     Dates: start: 20070501, end: 20090609
  7. BONIVA [Suspect]
     Indication: OSTEOPOROSIS
  8. CENTRUM SILVER [Concomitant]
     Dosage: UNK, qd
     Dates: start: 2000
  9. CALTRATE [Concomitant]
     Dosage: 1200 mg, qd
     Dates: start: 2000
  10. ATENOLOL [Concomitant]
     Indication: TACHYCARDIA
     Dosage: UNK
     Dates: start: 2000
  11. ATENOLOL [Concomitant]
     Indication: MITRAL VALVE DISEASE
  12. PREMPRO [Concomitant]
     Indication: OSTEOPOROSIS
  13. CALCIUM (UNSPECIFIED) (+) VITAMIN D (UNSPECIFIED) [Concomitant]
     Indication: OSTEOPENIA

REACTIONS (23)
  - Femur fracture [Recovered/Resolved]
  - Closed fracture manipulation [Unknown]
  - Renal failure [Unknown]
  - Tonsillectomy [Unknown]
  - Cerebrovascular accident [Unknown]
  - Fracture nonunion [Unknown]
  - Anaemia [Unknown]
  - Low turnover osteopathy [Unknown]
  - Depression [Unknown]
  - Anxiety [Not Recovered/Not Resolved]
  - Fear [Not Recovered/Not Resolved]
  - Adverse event [Unknown]
  - Acquired claw toe [Unknown]
  - Bursitis [Unknown]
  - Osteoarthritis [Unknown]
  - Spondylolisthesis [Unknown]
  - Sinusitis [Unknown]
  - Compression fracture [Unknown]
  - Varicose vein [Unknown]
  - Kyphosis [Unknown]
  - Rib fracture [Unknown]
  - Rheumatoid arthritis [Unknown]
  - Drug ineffective [Unknown]
